FAERS Safety Report 18040138 (Version 1)
Quarter: 2020Q3

REPORT INFORMATION
  Report Type: Spontaneous
  Country: US (occurrence: US)
  Receive Date: 20200718
  Receipt Date: 20200718
  Transmission Date: 20201103
  Serious: Yes (Hospitalization, Other)
  Sender: FDA-Public Use
  Company Number: US-AUROBINDO-AUR-APL-2020-034272

PATIENT
  Age: 4 Month
  Sex: Female

DRUGS (1)
  1. FLECAINIDE [Suspect]
     Active Substance: FLECAINIDE
     Indication: ATRIAL TACHYCARDIA
     Dosage: UNK
     Route: 065

REACTIONS (15)
  - Condition aggravated [Unknown]
  - Tachycardia [Recovered/Resolved]
  - Blood creatinine increased [Unknown]
  - Haemodynamic instability [Recovered/Resolved]
  - Metabolic acidosis [Unknown]
  - Renal impairment [Unknown]
  - Drug level above therapeutic [Unknown]
  - Seizure [Unknown]
  - Hypotension [Recovered/Resolved]
  - Dehydration [Unknown]
  - Electrocardiogram QRS complex prolonged [Recovered/Resolved]
  - Venous oxygen saturation decreased [Recovered/Resolved]
  - Toxicity to various agents [Unknown]
  - Overdose [Unknown]
  - Product administration error [Unknown]
